FAERS Safety Report 7672167 (Version 2)
Quarter: 2012Q4

REPORT INFORMATION
  Report Type: 
  Country: US (occurrence: US)
  Receive Date: 20101117
  Receipt Date: 20120928
  Transmission Date: 20130627
  Serious: Yes (Death, Life-Threatening, Hospitalization)
  Sender: FDA-Public Use
  Company Number: US-US-EMD SERONO, INC.-7002952

PATIENT
  Age: 42 None
  Sex: Female

DRUGS (2)
  1. REBIF [Suspect]
     Indication: MULTIPLE SCLEROSIS
     Route: 058
     Dates: start: 20040421
  2. NAPROXEN [Concomitant]
     Indication: PREMEDICATION

REACTIONS (9)
  - Pneumonia [Fatal]
  - Unresponsive to stimuli [Fatal]
  - Urinary bladder haemorrhage [Fatal]
  - Eating disorder [Unknown]
  - Volvulus [Recovered/Resolved]
  - Blood sodium decreased [Unknown]
  - Blood potassium decreased [Unknown]
  - Convulsion [Not Recovered/Not Resolved]
  - Urinary tract infection [Unknown]
